FAERS Safety Report 4505027-7 (Version None)
Quarter: 2004Q4

REPORT INFORMATION
  Report Type: 
  Country: None (occurrence: None)
  Receive Date: 20041116
  Receipt Date: 20041102
  Transmission Date: 20050328
  Serious: Yes (Hospitalization)
  Sender: FDA-Public Use
  Company Number: 2004SE06134

PATIENT
  Age: 32 Year
  Sex: Male

DRUGS (1)
  1. QUETIAPINE [Suspect]
     Indication: SCHIZOPHRENIA
     Dosage: 600 MG QD PO
     Route: 048
     Dates: start: 20040924

REACTIONS (2)
  - CONDITION AGGRAVATED [None]
  - SCHIZOPHRENIA [None]
